FAERS Safety Report 24581874 (Version 2)
Quarter: 2024Q4

REPORT INFORMATION
  Report Type: Report from Study
  Country: FR (occurrence: FR)
  Receive Date: 20241105
  Receipt Date: 20241106
  Transmission Date: 20250115
  Serious: No
  Sender: SANDOZ
  Company Number: FR-SANDOZ-SDZ2024FR092253

PATIENT
  Age: 9 Year
  Sex: Male

DRUGS (1)
  1. OMNITROPE [Suspect]
     Active Substance: SOMATROPIN
     Indication: Product used for unknown indication
     Dosage: 0.8 MG, 7D/7
     Route: 058

REACTIONS (5)
  - Product dose omission issue [Unknown]
  - Device difficult to use [Unknown]
  - Poor quality device used [Unknown]
  - Device mechanical issue [Unknown]
  - Device breakage [Unknown]

NARRATIVE: CASE EVENT DATE: 20231001
